FAERS Safety Report 7624012-X (Version None)
Quarter: 2011Q3

REPORT INFORMATION
  Report Type: 
  Country: None (occurrence: None)
  Receive Date: 20110720
  Receipt Date: 20110706
  Transmission Date: 20111222
  Serious: No
  Sender: FDA-Public Use
  Company Number: US-PFIZER INC-2011152648

PATIENT
  Sex: Female

DRUGS (2)
  1. IBUPROFEN [Suspect]
     Indication: PAIN
     Dosage: UNK
     Route: 065
  2. THERMACARE MENSTRUAL [Suspect]
     Indication: PAIN
     Dosage: UNK

REACTIONS (2)
  - DEVICE INEFFECTIVE [None]
  - DRUG INEFFECTIVE [None]
